FAERS Safety Report 22166509 (Version 2)
Quarter: 2023Q2

REPORT INFORMATION
  Report Type: Spontaneous
  Country: IT (occurrence: IT)
  Receive Date: 20230403
  Receipt Date: 20230410
  Transmission Date: 20230722
  Serious: Yes (Hospitalization)
  Sender: FDA-Public Use
  Company Number: None

PATIENT
  Age: 83 Year
  Sex: Female

DRUGS (3)
  1. PIPERACILLIN SODIUM\TAZOBACTAM SODIUM [Suspect]
     Active Substance: PIPERACILLIN SODIUM\TAZOBACTAM SODIUM
     Indication: Sepsis
     Dosage: 4.5 G, BID (4.5 G  X 2 / DIE)
     Route: 042
     Dates: start: 20230208
  2. METHYLPREDNISOLONE [Concomitant]
     Active Substance: METHYLPREDNISOLONE
     Indication: Pulmonary embolism
     Dosage: 40 MG, Q24H (40 MG DIE)
     Route: 042
     Dates: start: 20230208
  3. PANTOPRAZOLE SODIUM [Concomitant]
     Active Substance: PANTOPRAZOLE SODIUM
     Indication: Gastrooesophageal reflux disease
     Dosage: 40 MG, Q24H (40 MG DIE)
     Route: 042
     Dates: start: 20230208

REACTIONS (2)
  - Amylase increased [Not Recovered/Not Resolved]
  - Hypercreatinaemia [Not Recovered/Not Resolved]

NARRATIVE: CASE EVENT DATE: 20230209
